FAERS Safety Report 4604992-7 (Version None)
Quarter: 2005Q2

REPORT INFORMATION
  Report Type: 
  Country: None (occurrence: None)
  Receive Date: 20050217
  Receipt Date: 20041217
  Transmission Date: 20051028
  Serious: No
  Sender: FDA-Public Use
  Company Number: S04-USA-06747-01

PATIENT
  Age: 82 Year
  Sex: Female

DRUGS (13)
  1. NAMENDA [Suspect]
     Indication: DEMENTIA
     Dosage: 5 MG QD PO
     Route: 048
     Dates: start: 20040930, end: 20041006
  2. NAMENDA [Suspect]
     Indication: DEMENTIA
     Dosage: 5 MG BID PO
     Route: 048
     Dates: start: 20041007, end: 20041013
  3. NAMENDA [Suspect]
     Indication: DEMENTIA
     Dosage: 15 MG QD PO
     Route: 048
     Dates: start: 20041014, end: 20041020
  4. NAMENDA [Suspect]
     Indication: DEMENTIA
     Dosage: 10 MG BID PO
     Route: 048
     Dates: start: 20041021, end: 20041030
  5. CELEBREX [Concomitant]
  6. EFFEXOR XR [Concomitant]
  7. POTASSIUM CHLORIDE [Concomitant]
  8. LISINOPRIL [Concomitant]
  9. PROTONIX [Concomitant]
  10. ZYRTEC [Concomitant]
  11. ZYPREXA [Concomitant]
  12. TRAZODONE HCL [Concomitant]
  13. MULTI-VITAMIN [Concomitant]

REACTIONS (3)
  - DECREASED APPETITE [None]
  - DIET REFUSAL [None]
  - WEIGHT DECREASED [None]
